FAERS Safety Report 8298313-9 (Version None)
Quarter: 2012Q2

REPORT INFORMATION
  Report Type: 
  Country: None (occurrence: None)
  Receive Date: 20120419
  Receipt Date: 20120412
  Transmission Date: 20120825
  Serious: Yes (Death, Hospitalization, Other)
  Sender: FDA-Public Use
  Company Number: PHHY2012IN032667

PATIENT
  Age: 47 Year
  Sex: Female

DRUGS (4)
  1. ANTI-THYMOCYTE GLOBULIN EQUINE NOS [Suspect]
  2. MYCOPHENOLATE MOFETIL [Suspect]
     Indication: RENAL TRANSPLANT
  3. CYCLOSPORINE [Suspect]
     Indication: RENAL TRANSPLANT
  4. PREDNISOLONE [Suspect]
     Indication: RENAL TRANSPLANT

REACTIONS (20)
  - EYE PAIN [None]
  - RETROPERITONEAL HAEMATOMA [None]
  - SEROSITIS [None]
  - HAEMATURIA [None]
  - ASPARTATE AMINOTRANSFERASE INCREASED [None]
  - LEUKOPENIA [None]
  - THROMBOCYTOPENIA [None]
  - ASCITES [None]
  - ALANINE AMINOTRANSFERASE INCREASED [None]
  - DENGUE FEVER [None]
  - ARTHRALGIA [None]
  - PLEURAL EFFUSION [None]
  - RESPIRATORY ARREST [None]
  - PULMONARY EMBOLISM [None]
  - ATRIAL FIBRILLATION [None]
  - GRAFT DYSFUNCTION [None]
  - PYREXIA [None]
  - ANAEMIA [None]
  - MYALGIA [None]
  - SHOCK [None]
